FAERS Safety Report 6877058-3 (Version None)
Quarter: 2010Q3

REPORT INFORMATION
  Report Type: 
  Country: None (occurrence: None)
  Receive Date: 20100727
  Receipt Date: 20100719
  Transmission Date: 20110219
  Serious: Yes (Other)
  Sender: FDA-Public Use
  Company Number: IT-ABBOTT-10P-083-0650430-00

PATIENT
  Sex: Female

DRUGS (17)
  1. HUMIRA [Suspect]
     Indication: RHEUMATOID ARTHRITIS
     Route: 058
     Dates: start: 20050405, end: 20060601
  2. HUMIRA [Suspect]
     Dates: start: 20060601, end: 20070401
  3. HUMIRA [Suspect]
     Route: 058
     Dates: start: 20070401, end: 20080401
  4. COMMERCIAL HUMIRA [Concomitant]
     Indication: RHEUMATOID ARTHRITIS
     Route: 058
     Dates: start: 20040715
  5. FERROGRAD [Concomitant]
     Indication: IRON DEFICIENCY ANAEMIA
     Route: 048
     Dates: start: 19700601
  6. AULIN [Concomitant]
     Indication: RHEUMATOID ARTHRITIS
     Route: 048
     Dates: start: 19980701
  7. CELEBREX [Concomitant]
     Indication: RHEUMATOID ARTHRITIS
     Route: 048
     Dates: start: 20000701
  8. FARLUTAL [Concomitant]
     Indication: MENOPAUSE
     Route: 048
     Dates: start: 20040219
  9. MTX [Concomitant]
     Indication: RHEUMATOID ARTHRITIS
     Route: 030
     Dates: start: 20040706
  10. MTX [Concomitant]
     Dates: start: 20040510, end: 20040704
  11. MTX [Concomitant]
     Route: 030
     Dates: start: 20040315, end: 20040510
  12. MTX [Concomitant]
     Dates: start: 19980701, end: 20040315
  13. ARAVA [Concomitant]
     Indication: PRODUCT USED FOR UNKNOWN INDICATION
  14. RAMIPRIL [Concomitant]
     Indication: PRODUCT USED FOR UNKNOWN INDICATION
  15. FOLINA [Concomitant]
     Indication: PRODUCT USED FOR UNKNOWN INDICATION
  16. FEVARIN [Concomitant]
     Indication: PRODUCT USED FOR UNKNOWN INDICATION
  17. NEXIUM [Concomitant]
     Indication: PRODUCT USED FOR UNKNOWN INDICATION

REACTIONS (1)
  - PANCREATITIS ACUTE [None]
